FAERS Safety Report 8114990-7 (Version None)
Quarter: 2012Q1

REPORT INFORMATION
  Report Type: 
  Country: None (occurrence: None)
  Receive Date: 20120206
  Receipt Date: 20120130
  Transmission Date: 20120608
  Serious: Yes (Life-Threatening, Hospitalization)
  Sender: FDA-Public Use
  Company Number: BE-BRISTOL-MYERS SQUIBB COMPANY-16360406

PATIENT
  Age: 62 Year
  Sex: Female

DRUGS (6)
  1. AMLODIPINE [Concomitant]
  2. METFORMIN HCL [Suspect]
     Indication: DIABETES MELLITUS
  3. OLMESARTAN MEDOXOMIL [Suspect]
  4. INSULIN ASPART [Concomitant]
     Indication: DIABETES MELLITUS
     Route: 058
  5. INSULIN GLARGINE [Concomitant]
     Indication: DIABETES MELLITUS
     Route: 058
  6. ATORVASTATIN [Concomitant]

REACTIONS (3)
  - RENAL FAILURE ACUTE [None]
  - LACTIC ACIDOSIS [None]
  - BLOOD CULTURE POSITIVE [None]
